FAERS Safety Report 17387371 (Version 2)
Quarter: 2020Q1

REPORT INFORMATION
  Report Type: Spontaneous
  Country: GB (occurrence: GB)
  Receive Date: 20200206
  Receipt Date: 20200309
  Transmission Date: 20200409
  Serious: Yes (Death, Life-Threatening, Hospitalization, Disabling, Other)
  Sender: FDA-Public Use
  Company Number: GB-MYLANLABS-2020M1013593

PATIENT
  Age: 73 Year
  Sex: Male
  Weight: 117 kg

DRUGS (18)
  1. PIPERACILLIN SODIUM [Concomitant]
     Active Substance: PIPERACILLIN SODIUM
     Dosage: UNK
  2. ALLOPURINOL. [Suspect]
     Active Substance: ALLOPURINOL
     Indication: TUMOUR LYSIS SYNDROME
     Dosage: EACH MORNING
     Route: 048
     Dates: start: 20160216, end: 20190815
  3. BISOPROLOL FUMARATE. [Concomitant]
     Active Substance: BISOPROLOL FUMARATE
     Indication: HEART RATE DECREASED
     Dosage: 2.5 MILLIGRAM
     Dates: end: 20190904
  4. VENETOCLAX. [Suspect]
     Active Substance: VENETOCLAX
     Indication: CHRONIC LYMPHOCYTIC LEUKAEMIA
     Dosage: 80 MILLIGRAM
     Dates: start: 20190817, end: 20190902
  5. FUROSEMIDE. [Concomitant]
     Active Substance: FUROSEMIDE
     Dosage: EACH MORNING
     Dates: end: 20190821
  6. CLARITHROMYCIN. [Concomitant]
     Active Substance: CLARITHROMYCIN
     Dosage: 1000 MILLIGRAM, QD
     Dates: start: 20190829, end: 20190830
  7. RITUXIMAB. [Concomitant]
     Active Substance: RITUXIMAB
     Dosage: UNK
  8. ATORVASTATIN CALCIUM. [Concomitant]
     Active Substance: ATORVASTATIN CALCIUM
     Dosage: EACH NIGHT, 80-40 MG.
     Dates: end: 20190904
  9. TAZOCIN [Concomitant]
     Active Substance: PIPERACILLIN SODIUM\TAZOBACTAM SODIUM
     Dosage: UNK
     Dates: start: 20190825, end: 20190830
  10. VENETOCLAX. [Suspect]
     Active Substance: VENETOCLAX
     Dosage: 50 MILLIGRAM, QD EACH MORNING
     Dates: start: 20190809, end: 20190816
  11. VENETOCLAX. [Suspect]
     Active Substance: VENETOCLAX
     Indication: CHRONIC LYMPHOCYTIC LEUKAEMIA
     Dosage: EACH MORNING
     Route: 048
     Dates: start: 20190802, end: 20190808
  12. RAMIPRIL. [Concomitant]
     Active Substance: RAMIPRIL
     Indication: HYPOTENSION
     Dosage: 1.25 MILLIGRAM
     Dates: start: 20190817, end: 20190817
  13. COTRIMOXAZOLE [Concomitant]
     Active Substance: SULFAMETHOXAZOLE\TRIMETHOPRIM
     Dosage: MONDAY, WEDNESDAY AND FRIDAY
     Dates: start: 201602, end: 20190821
  14. RASBURICASE [Concomitant]
     Active Substance: RASBURICASE
     Dosage: 6 MILLIGRAM
     Dates: start: 20190802
  15. ACICLOVIR [Concomitant]
     Active Substance: ACYCLOVIR
     Dosage: 800 MILLIGRAM, QD
  16. FEBUXOSTAT. [Suspect]
     Active Substance: FEBUXOSTAT
     Indication: TUMOUR LYSIS SYNDROME
     Dosage: 80 MILLIGRAM, QD EACH MORNING
     Route: 048
     Dates: start: 20190817, end: 20190902
  17. INSULIN HUMAN ISOPHANE [Concomitant]
     Active Substance: INSULIN HUMAN
     Dosage: UNK
  18. EPLERENONE. [Concomitant]
     Active Substance: EPLERENONE
     Indication: HYPOTENSION
     Dosage: 12.5 MILLIGRAM

REACTIONS (22)
  - Dyspnoea [Unknown]
  - Heart rate abnormal [Unknown]
  - Condition aggravated [Unknown]
  - Chest pain [Unknown]
  - Angina pectoris [Unknown]
  - Pancytopenia [Unknown]
  - Sepsis [Fatal]
  - Oedema peripheral [Unknown]
  - Dry skin [Unknown]
  - Toxic epidermal necrolysis [Unknown]
  - Acute kidney injury [Unknown]
  - Skin disorder [Unknown]
  - Blister [Unknown]
  - Skin exfoliation [Unknown]
  - Anaemia [Unknown]
  - Erythema [Unknown]
  - Rash vesicular [Unknown]
  - Folliculitis [Unknown]
  - Cardiac failure [Unknown]
  - Skin weeping [Unknown]
  - Rash pruritic [Unknown]
  - Skin discolouration [Unknown]

NARRATIVE: CASE EVENT DATE: 20190726
